FAERS Safety Report 12482830 (Version 4)
Quarter: 2016Q4

REPORT INFORMATION
  Report Type: Spontaneous
  Country: US (occurrence: US)
  Receive Date: 20160620
  Receipt Date: 20161128
  Transmission Date: 20170207
  Serious: No
  Sender: FDA-Public Use
  Company Number: US-ACTELION-A-US2016-136883

PATIENT
  Age: 61 Year
  Sex: Female

DRUGS (17)
  1. LAMOTRIGINE. [Concomitant]
     Active Substance: LAMOTRIGINE
  2. HYDROMORPHONE [Concomitant]
     Active Substance: HYDROMORPHONE
  3. ZANTAC [Concomitant]
     Active Substance: RANITIDINE HYDROCHLORIDE
  4. MECLIZINE [Concomitant]
     Active Substance: MECLIZINE HYDROCHLORIDE
  5. WARFARIN [Concomitant]
     Active Substance: WARFARIN
  6. TRAZODONE [Concomitant]
     Active Substance: TRAZODONE HYDROCHLORIDE
  7. OMEPRAZOLE. [Concomitant]
     Active Substance: OMEPRAZOLE
  8. SILDENAFIL. [Concomitant]
     Active Substance: SILDENAFIL
  9. OPSUMIT [Suspect]
     Active Substance: MACITENTAN
     Indication: PULMONARY ARTERIAL HYPERTENSION
     Dosage: 10 MG, QD
     Route: 048
     Dates: start: 201412
  10. OPSUMIT [Suspect]
     Active Substance: MACITENTAN
     Dosage: 10 MG, QD
     Route: 048
     Dates: start: 20150917
  11. RENVELA [Concomitant]
     Active Substance: SEVELAMER CARBONATE
  12. ONDANSETRON [Concomitant]
     Active Substance: ONDANSETRON
  13. DOCUSATE SODIUM. [Concomitant]
     Active Substance: DOCUSATE SODIUM
     Dosage: 100 MG, BID
  14. SUCRALFATE. [Concomitant]
     Active Substance: SUCRALFATE
     Dosage: 1 GR, QID
  15. INDERAL [Suspect]
     Active Substance: PROPRANOLOL HYDROCHLORIDE
     Indication: PRODUCT USED FOR UNKNOWN INDICATION
     Route: 065
  16. SPS [Concomitant]
     Active Substance: SODIUM POLYSTYRENE SULFONATE
  17. SENNOSIDES A+B [Concomitant]
     Active Substance: SENNOSIDES A AND B
     Dosage: 8.6 MG, BID

REACTIONS (8)
  - Condition aggravated [Unknown]
  - Muscular weakness [Unknown]
  - Dyspnoea [Unknown]
  - Blood pressure systolic decreased [Unknown]
  - Migraine [Unknown]
  - Vertigo [Unknown]
  - Pain in extremity [Unknown]
  - Nausea [Unknown]

NARRATIVE: CASE EVENT DATE: 20160520
